FAERS Safety Report 13520218 (Version 1)
Quarter: 2017Q2

REPORT INFORMATION
  Report Type: Spontaneous
  Country: DE (occurrence: DE)
  Receive Date: 20170507
  Receipt Date: 20170507
  Transmission Date: 20170830
  Serious: Yes (Other)
  Sender: FDA-Public Use
  Company Number: DE-DRREDDYS-GER/GER/17/0090449

PATIENT
  Age: 1 Day
  Sex: Male
  Weight: 2.91 kg

DRUGS (6)
  1. TANTUM VERDE [Concomitant]
     Active Substance: BENZYDAMINE HYDROCHLORIDE
     Indication: PHARYNGITIS
     Route: 064
  2. FOLIO FORTE [Concomitant]
     Active Substance: FOLIC ACID\VITAMINS
     Indication: PROPHYLAXIS OF NEURAL TUBE DEFECT
     Route: 064
     Dates: start: 20160405, end: 20170119
  3. MENOGON [Concomitant]
     Active Substance: MENOTROPINS
     Indication: INFERTILITY FEMALE
     Route: 064
     Dates: start: 20160411, end: 20160420
  4. SERTRALINE [Suspect]
     Active Substance: SERTRALINE HYDROCHLORIDE
     Indication: DEPRESSION
     Route: 064
     Dates: start: 20160405, end: 20170119
  5. LEVOTHYROXINE SODIUM. [Concomitant]
     Active Substance: LEVOTHYROXINE SODIUM
     Indication: HYPOTHYROIDISM
     Route: 064
     Dates: start: 20160405, end: 20170119
  6. VIGANTOLETTEN 1000 [Concomitant]
     Indication: VITAMIN D DEFICIENCY
     Route: 064
     Dates: start: 20160405, end: 20170119

REACTIONS (2)
  - Small for dates baby [Recovered/Resolved]
  - Foetal exposure during pregnancy [Recovered/Resolved]

NARRATIVE: CASE EVENT DATE: 20170119
